FAERS Safety Report 10367159 (Version 2)
Quarter: 2014Q3

REPORT INFORMATION
  Report Type: Report from Study
  Country: CA (occurrence: CA)
  Receive Date: 20140807
  Receipt Date: 20140813
  Transmission Date: 20150326
  Serious: Yes (Death, Hospitalization)
  Sender: FDA-Public Use
  Company Number: CA-BRISTOL-MYERS SQUIBB COMPANY-21259502

PATIENT
  Age: 73 Year
  Sex: Female

DRUGS (6)
  1. HYDROMORPHONE [Concomitant]
     Active Substance: HYDROMORPHONE
  2. GABAPENTIN. [Concomitant]
     Active Substance: GABAPENTIN
  3. FOLIC ACID. [Concomitant]
     Active Substance: FOLIC ACID
  4. PREDNISONE. [Concomitant]
     Active Substance: PREDNISONE
  5. ORENCIA [Suspect]
     Active Substance: ABATACEPT
     Indication: RHEUMATOID ARTHRITIS
     Dosage: LAST INFUSION WAS 02JUL14
     Route: 042
     Dates: start: 20130703
  6. METHOTREXATE [Concomitant]
     Active Substance: METHOTREXATE

REACTIONS (4)
  - Death [Fatal]
  - Aphasia [Recovering/Resolving]
  - Cerebrovascular accident [Recovering/Resolving]
  - Hemiplegia [Recovering/Resolving]

NARRATIVE: CASE EVENT DATE: 20140727
